FAERS Safety Report 16762385 (Version 6)
Quarter: 2020Q2

REPORT INFORMATION
  Report Type: Spontaneous
  Country: ES (occurrence: ES)
  Receive Date: 20190831
  Receipt Date: 20200520
  Transmission Date: 20200713
  Serious: Yes (Hospitalization, Disabling, Other)
  Sender: FDA-Public Use
  Company Number: ES-AUROBINDO-AUR-APL-2019-057127

PATIENT
  Age: 82 Year
  Sex: Female

DRUGS (7)
  1. AMLODIPINE [Suspect]
     Active Substance: AMLODIPINE BESYLATE
     Indication: HYPERTELORISM OF ORBIT
     Dosage: 2.5 MILLIGRAM, ONCE A DAY AT DINNER
     Route: 065
  2. BROMAZEPAM [Interacting]
     Active Substance: BROMAZEPAM
     Indication: PRODUCT USED FOR UNKNOWN INDICATION
     Dosage: 3 MILLIGRAM, ONCE A DAY
     Route: 065
  3. ACETYLSALICYLIC ACID [Suspect]
     Active Substance: ASPIRIN
     Indication: PRODUCT USED FOR UNKNOWN INDICATION
     Dosage: 100 MILLIGRAM, ONCE A DAY
     Route: 065
  4. SERTRALINE [Interacting]
     Active Substance: SERTRALINE HYDROCHLORIDE
     Indication: BEREAVEMENT
     Dosage: 50 MILLIGRAM, ONCE A DAY
     Route: 065
  5. AMLODIPINE/VALSARTAN [Interacting]
     Active Substance: AMLODIPINE\VALSARTAN
     Indication: HYPERTELORISM OF ORBIT
     Dosage: 5/160 MG AT BREAKFAST
     Route: 065
  6. OMEPRAZOLE. [Interacting]
     Active Substance: OMEPRAZOLE
     Indication: PRODUCT USED FOR UNKNOWN INDICATION
     Dosage: 20 MILLIGRAM, ONCE A DAY
     Route: 065
  7. SIMVASTATIN. [Suspect]
     Active Substance: SIMVASTATIN
     Indication: DYSLIPIDAEMIA
     Dosage: 20 MILLIGRAM, ONCE A DAY, AT DINNER
     Route: 065

REACTIONS (12)
  - Fall [Recovered/Resolved]
  - Tremor [Recovered/Resolved]
  - Impaired quality of life [Recovered/Resolved]
  - Reduced facial expression [Recovered/Resolved]
  - Drug interaction [Recovered/Resolved]
  - Off label use [Recovered/Resolved]
  - Bradykinesia [Recovered/Resolved]
  - Peroneal nerve palsy [Recovered/Resolved]
  - Apathy [Recovered/Resolved]
  - Torticollis [Recovered/Resolved]
  - Parkinsonism [Recovered/Resolved]
  - Cogwheel rigidity [Recovered/Resolved]
